FAERS Safety Report 21825544 (Version 3)
Quarter: 2023Q1

REPORT INFORMATION
  Report Type: Spontaneous
  Country: IL (occurrence: IL)
  Receive Date: 20230105
  Receipt Date: 20230127
  Transmission Date: 20230417
  Serious: Yes (Other)
  Sender: FDA-Public Use
  Company Number: IL-BIOMARINQT-IL-2022-147822

PATIENT

DRUGS (1)
  1. VOXZOGO [Suspect]
     Active Substance: VOSORITIDE
     Indication: Osteochondrodysplasia
     Dosage: UNK, QD
     Route: 058
     Dates: start: 20220201

REACTIONS (3)
  - Knee deformity [Unknown]
  - Impaired healing [Unknown]
  - Bone pain [Unknown]

NARRATIVE: CASE EVENT DATE: 20220701
